FAERS Safety Report 11237075 (Version 1)
Quarter: 2015Q3

REPORT INFORMATION
  Report Type: Spontaneous
  Country: US (occurrence: US)
  Receive Date: 20150703
  Receipt Date: 20150703
  Transmission Date: 20151125
  Serious: Yes (Death, Other)
  Sender: FDA-Public Use
  Company Number: US-JNJFOC-20150616731

PATIENT
  Age: 89 Year

DRUGS (1)
  1. XARELTO [Suspect]
     Active Substance: RIVAROXABAN
     Indication: PRODUCT USED FOR UNKNOWN INDICATION
     Route: 048
     Dates: start: 20130518, end: 20130520

REACTIONS (2)
  - Haemorrhage intracranial [Unknown]
  - Death [Fatal]

NARRATIVE: CASE EVENT DATE: 20130520
